FAERS Safety Report 8827774 (Version 1)
Quarter: 2012Q4

REPORT INFORMATION
  Report Type: 
  Country: US (occurrence: US)
  Receive Date: 20121008
  Receipt Date: 20121008
  Transmission Date: 20130627
  Serious: No
  Sender: FDA-Public Use
  Company Number: US-PFIZER INC-2012246268

PATIENT
  Age: 66 Year
  Sex: Male
  Weight: 104 kg

DRUGS (5)
  1. NORVASC [Suspect]
     Indication: HYPERTENSION
     Dosage: 5 mg, daily at night
     Dates: start: 2011, end: 201208
  2. DIOVAN HCT [Suspect]
     Indication: HYPERTENSION
     Dosage: 160/12.5 mg daily at night
  3. BYSTOLIC [Suspect]
     Indication: HYPERTENSION
     Dosage: 10 mg, daily at night
  4. VIAGRA [Concomitant]
     Indication: ERECTILE DYSFUNCTION
     Dosage: 100 mg, as needed
  5. ACETYLSALICYLIC ACID [Concomitant]
     Indication: MUSCULOSKELETAL PAIN
     Dosage: 325 mg, as needed

REACTIONS (3)
  - Headache [Not Recovered/Not Resolved]
  - Fatigue [Not Recovered/Not Resolved]
  - Dizziness [Recovered/Resolved]
